FAERS Safety Report 10485088 (Version 2)
Quarter: 2015Q1

REPORT INFORMATION
  Report Type: Other
  Country: PL (occurrence: PL)
  Receive Date: 20140930
  Receipt Date: 20150330
  Transmission Date: 20150720
  Serious: Yes (Other)
  Sender: FDA-Public Use
  Company Number: PL-PURDUE-DEU-2014-0015453

PATIENT
  Age: 26 Year
  Sex: Female

DRUGS (14)
  1. METOCLOPRAMIDE. [Interacting]
     Active Substance: METOCLOPRAMIDE
     Indication: DYSPEPSIA
     Dosage: 20 MG, DAILY
     Route: 051
  2. TACROLIMUS. [Concomitant]
     Active Substance: TACROLIMUS
     Indication: IMMUNOSUPPRESSANT DRUG THERAPY
  3. STEROIDS [Concomitant]
     Active Substance: UNSPECIFIED INGREDIENT
     Indication: IMMUNOSUPPRESSANT DRUG THERAPY
  4. MAGNESIUM [Concomitant]
     Active Substance: MAGNESIUM
  5. OMEPRAZOLE. [Concomitant]
     Active Substance: OMEPRAZOLE
     Dosage: UNK, SEE TEXT
  6. METOCLOPRAMIDE. [Interacting]
     Active Substance: METOCLOPRAMIDE
     Indication: PROCEDURAL NAUSEA
  7. FUROSEMIDE. [Concomitant]
     Active Substance: FUROSEMIDE
  8. KALDYUM [Concomitant]
     Active Substance: POTASSIUM CHLORIDE
  9. METOCLOPRAMIDE. [Interacting]
     Active Substance: METOCLOPRAMIDE
     Indication: PROCEDURAL VOMITING
  10. PARACETAMOL [Concomitant]
     Active Substance: ACETAMINOPHEN
  11. NON-PMN THEOPHYLLINE [Suspect]
     Active Substance: THEOPHYLLINE ANHYDROUS
     Indication: BRADYCARDIA
     Dosage: UNK UNK, SEE TEXT
     Route: 051
  12. METOCLOPRAMIDE. [Interacting]
     Active Substance: METOCLOPRAMIDE
     Indication: POST PROCEDURAL CONSTIPATION
  13. ATG                                /00575401/ [Concomitant]
     Active Substance: LAPINE T-LYMPHOCYTE IMMUNE GLOBULIN
     Indication: ATRIOVENTRICULAR BLOCK COMPLETE
  14. MYCOPHENOLATE MOFETIL. [Concomitant]
     Active Substance: MYCOPHENOLATE MOFETIL
     Indication: IMMUNOSUPPRESSANT DRUG THERAPY

REACTIONS (3)
  - Generalised tonic-clonic seizure [Recovered/Resolved]
  - Drug interaction [Recovered/Resolved]
  - Overdose [Recovered/Resolved]
